FAERS Safety Report 19170113 (Version 2)
Quarter: 2021Q2

REPORT INFORMATION
  Report Type: Spontaneous
  Country: US (occurrence: US)
  Receive Date: 20210422
  Receipt Date: 20210512
  Transmission Date: 20210717
  Serious: No
  Sender: FDA-Public Use
  Company Number: US-KARYOPHARM-2021KPT000284

PATIENT

DRUGS (1)
  1. XPOVIO [Suspect]
     Active Substance: SELINEXOR
     Indication: PLASMA CELL MYELOMA
     Dosage: 100 MG, WEEKLY
     Route: 048
     Dates: start: 20210122, end: 202102

REACTIONS (7)
  - Plasma cell myeloma [Unknown]
  - Asthenia [Unknown]
  - Nausea [Recovered/Resolved]
  - Platelet count decreased [Recovered/Resolved]
  - Fluid intake reduced [Unknown]
  - Diarrhoea [Unknown]
  - Red blood cell count decreased [Recovered/Resolved]

NARRATIVE: CASE EVENT DATE: 202102
